FAERS Safety Report 19563451 (Version 2)
Quarter: 2021Q3

REPORT INFORMATION
  Report Type: Spontaneous
  Country: JP (occurrence: JP)
  Receive Date: 20210715
  Receipt Date: 20210804
  Transmission Date: 20211014
  Serious: Yes (Hospitalization)
  Sender: FDA-Public Use
  Company Number: JP-EISAI MEDICAL RESEARCH-EC-2021-095942

PATIENT
  Sex: Female
  Weight: 42 kg

DRUGS (2)
  1. LENVIMA [Suspect]
     Active Substance: LENVATINIB
     Route: 048
     Dates: start: 20210713
  2. LENVIMA [Suspect]
     Active Substance: LENVATINIB
     Indication: ANAPLASTIC THYROID CANCER
     Route: 048
     Dates: start: 20210405, end: 20210708

REACTIONS (3)
  - Pneumothorax [Unknown]
  - Pulmonary cavitation [Unknown]
  - Fistula [Unknown]

NARRATIVE: CASE EVENT DATE: 202107
